FAERS Safety Report 23274662 (Version 1)
Quarter: 2023Q4

REPORT INFORMATION
  Report Type: Other
  Country: CA (occurrence: CA)
  Receive Date: 20231208
  Receipt Date: 20231208
  Transmission Date: 20240110
  Serious: Yes (Other)
  Sender: FDA-Public Use
  Company Number: CA-GE HEALTHCARE-2023CSU011293

PATIENT
  Age: 80 Year
  Sex: Female

DRUGS (2)
  1. VISIPAQUE [Suspect]
     Active Substance: IODIXANOL
     Indication: Magnetic resonance imaging
     Dosage: 70 ML, SINGLE
     Route: 042
  2. VISIPAQUE [Suspect]
     Active Substance: IODIXANOL
     Indication: Product used for unknown indication

REACTIONS (7)
  - Saccadic eye movement [Recovering/Resolving]
  - Salivary hypersecretion [Recovering/Resolving]
  - Tremor [Recovering/Resolving]
  - Wheezing [Recovering/Resolving]
  - Hypotension [Recovering/Resolving]
  - Pruritus [Recovering/Resolving]
  - Off label use [Recovering/Resolving]
